FAERS Safety Report 21921964 (Version 3)
Quarter: 2023Q1

REPORT INFORMATION
  Report Type: Report from Study
  Country: BE (occurrence: BE)
  Receive Date: 20230127
  Receipt Date: 20230302
  Transmission Date: 20230417
  Serious: Yes (Hospitalization)
  Sender: FDA-Public Use
  Company Number: BE-002147023-NVSC2023BE014698

PATIENT
  Age: 11 Year
  Sex: Male
  Weight: 29.8 kg

DRUGS (6)
  1. DABRAFENIB [Suspect]
     Active Substance: DABRAFENIB
     Indication: Brain neoplasm malignant
     Dosage: 150 MG
     Route: 048
     Dates: start: 20230114, end: 20230217
  2. DABRAFENIB [Suspect]
     Active Substance: DABRAFENIB
     Dosage: 150 MG
     Route: 048
     Dates: start: 20230125
  3. TRAMETINIB [Suspect]
     Active Substance: TRAMETINIB
     Indication: Brain neoplasm malignant
     Dosage: 0.7 MG
     Route: 048
     Dates: start: 20230114, end: 20230217
  4. TRAMETINIB [Suspect]
     Active Substance: TRAMETINIB
     Dosage: 0.7 MG
     Route: 048
     Dates: start: 20230125
  5. TRAMETINIB [Suspect]
     Active Substance: TRAMETINIB
     Dosage: 0.7 MG, QD
     Route: 048
     Dates: start: 20230220
  6. TRILEPTAL [Concomitant]
     Active Substance: OXCARBAZEPINE
     Indication: Epilepsy
     Dosage: 600 MG, BID
     Route: 065
     Dates: start: 20221130, end: 20230217

REACTIONS (11)
  - Panniculitis [Recovered/Resolved]
  - Erythema nodosum [Recovered/Resolved]
  - Sensitive skin [Unknown]
  - Pyrexia [Recovered/Resolved]
  - Streptococcal sepsis [Recovered/Resolved]
  - Infection [Unknown]
  - Influenza like illness [Unknown]
  - Pyrexia [Recovered/Resolved]
  - Chills [Recovered/Resolved]
  - Petechiae [Recovered/Resolved]
  - Dehydration [Recovered/Resolved]

NARRATIVE: CASE EVENT DATE: 20230120
